FAERS Safety Report 6123992-1 (Version None)
Quarter: 2009Q1

REPORT INFORMATION
  Report Type: 
  Country: None (occurrence: None)
  Receive Date: 20090318
  Receipt Date: 20090318
  Transmission Date: 20090719
  Serious: Yes (Death, Hospitalization)
  Sender: FDA-Public Use
  Company Number: None

PATIENT
  Age: 79 Year
  Sex: Male
  Weight: 74.8435 kg

DRUGS (1)
  1. FOSAMAX [Suspect]
     Dosage: 1 PILL ONCE A WEEK, EVERY THURSDAY
     Dates: start: 20070726

REACTIONS (4)
  - ARTHRALGIA [None]
  - BONE PAIN [None]
  - DYSPNOEA [None]
  - PAIN [None]
